FAERS Safety Report 23276400 (Version 1)
Quarter: 2023Q4

REPORT INFORMATION
  Report Type: Spontaneous
  Country: CN (occurrence: CN)
  Receive Date: 20231208
  Receipt Date: 20231208
  Transmission Date: 20240109
  Serious: Yes (Other)
  Sender: FDA-Public Use
  Company Number: CN-PFIZER INC-PV202300197018

PATIENT
  Age: 97 Year
  Sex: Female
  Weight: 60 kg

DRUGS (1)
  1. LINEZOLID [Suspect]
     Active Substance: LINEZOLID
     Indication: Urinary tract infection
     Dosage: 0.6 G, 2X/DAY
     Route: 041
     Dates: start: 20231023, end: 20231105

REACTIONS (2)
  - Platelet count decreased [Recovering/Resolving]
  - Lower gastrointestinal haemorrhage [Recovering/Resolving]

NARRATIVE: CASE EVENT DATE: 20231104
